FAERS Safety Report 20058917 (Version 1)
Quarter: 2021Q4

REPORT INFORMATION
  Report Type: Spontaneous
  Country: CN (occurrence: None)
  Receive Date: 20211111
  Receipt Date: 20211111
  Transmission Date: 20220303
  Serious: Yes (Hospitalization)
  Sender: FDA-Public Use
  Company Number: 2021A798327

PATIENT
  Age: 27444 Day
  Sex: Male

DRUGS (1)
  1. METFORMIN HYDROCHLORIDE\SAXAGLIPTIN HYDROCHLORIDE [Suspect]
     Active Substance: METFORMIN HYDROCHLORIDE\SAXAGLIPTIN HYDROCHLORIDE
     Indication: Blood glucose
     Route: 048
     Dates: start: 20210805, end: 20211021

REACTIONS (2)
  - Rash erythematous [Recovering/Resolving]
  - Oedema peripheral [Recovering/Resolving]

NARRATIVE: CASE EVENT DATE: 20211021
